FAERS Safety Report 12173601 (Version 1)
Quarter: 2016Q1

REPORT INFORMATION
  Report Type: Spontaneous
  Country: US (occurrence: None)
  Receive Date: 20160311
  Receipt Date: 20160311
  Transmission Date: 20160526
  Serious: Yes (Other)
  Sender: FDA-Public Use
  Company Number: None

PATIENT
  Age: 53 Year
  Sex: Female

DRUGS (2)
  1. DAKLINZA [Suspect]
     Active Substance: DACLATASVIR
     Indication: HEPATITIS C
     Dosage: 1 TABLET DAILY PO
     Route: 048
     Dates: start: 20160203
  2. SOVALDI [Suspect]
     Active Substance: SOFOSBUVIR
     Indication: HEPATITIS C
     Dosage: 1 TABLET DAILY PO
     Route: 048
     Dates: start: 20160203

REACTIONS (3)
  - Sinusitis [None]
  - Bronchitis [None]
  - Ear infection [None]

NARRATIVE: CASE EVENT DATE: 20160219
